FAERS Safety Report 9118985 (Version 4)
Quarter: 2013Q3

REPORT INFORMATION
  Report Type: Spontaneous
  Country: GB (occurrence: GB)
  Receive Date: 20130226
  Receipt Date: 20130819
  Transmission Date: 20140515
  Serious: Yes (Hospitalization, Other)
  Sender: FDA-Public Use
  Company Number: PHFR2012GB006368

PATIENT
  Age: 28 Year
  Sex: Male
  Weight: 85 kg

DRUGS (9)
  1. CLOZARIL [Suspect]
     Indication: SCHIZOPHRENIA
     Dosage: 400 MG, QD
     Route: 048
     Dates: start: 20111101
  2. CLOZARIL [Suspect]
     Dosage: UNK
     Route: 048
     Dates: start: 20111207
  3. LITHIUM CARBONATE [Suspect]
     Dosage: 800 MG,
     Route: 048
     Dates: start: 2009, end: 20121218
  4. ARIPIPRAZOLE [Concomitant]
     Indication: PSYCHOTIC DISORDER
     Dosage: 10 MG, UNK
     Dates: start: 20120831
  5. ARIPIPRAZOLE [Concomitant]
     Indication: SCHIZOPHRENIA
  6. LAMOTRIGINE [Concomitant]
     Indication: AFFECTIVE DISORDER
     Dosage: 200 MG, UNK
     Route: 048
     Dates: start: 20120831
  7. LAMOTRIGINE [Concomitant]
     Indication: SCHIZOPHRENIA
     Dosage: 100 MG, UNK
     Route: 048
  8. METOCLOPRAMIDE [Concomitant]
     Dosage: 30 MG, UNK
     Route: 048
     Dates: start: 20130218
  9. LANSOPRAZOLE [Concomitant]
     Indication: NAUSEA
     Dosage: 30 MG, QD
     Route: 048
     Dates: start: 20130220

REACTIONS (11)
  - Hydronephrosis [Not Recovered/Not Resolved]
  - Renal failure chronic [Not Recovered/Not Resolved]
  - Blood creatine increased [Unknown]
  - Blood urea increased [Unknown]
  - Glomerular filtration rate decreased [Unknown]
  - Urethral stenosis [Not Recovered/Not Resolved]
  - Renal impairment [Not Recovered/Not Resolved]
  - Urinary tract infection [Unknown]
  - Hypertension [Recovering/Resolving]
  - Urinary incontinence [Not Recovered/Not Resolved]
  - Constipation [Recovering/Resolving]
